FAERS Safety Report 8547646 (Version 7)
Quarter: 2016Q3

REPORT INFORMATION
  Report Type: Spontaneous
  Country: US (occurrence: US)
  Receive Date: 20120504
  Receipt Date: 20160729
  Transmission Date: 20161109
  Serious: Yes (Hospitalization, Disabling, Other)
  Sender: FDA-Public Use
  Company Number: US-009507513-1205USA00038

PATIENT
  Sex: Male
  Weight: 79.14 kg

DRUGS (7)
  1. FOSAMAX [Suspect]
     Active Substance: ALENDRONATE SODIUM
     Indication: OSTEOPOROSIS
     Dosage: 35 MG, UNKNOWN
     Route: 048
     Dates: start: 20011126, end: 20060703
  2. ALENDRONATE SODIUM. [Suspect]
     Active Substance: ALENDRONATE SODIUM
     Indication: BONE DENSITY ABNORMAL
     Dosage: 70 MG, UNKNOWN
     Route: 048
     Dates: start: 200807, end: 201003
  3. ACTONEL [Suspect]
     Active Substance: RISEDRONATE SODIUM
     Dosage: 35 MG, UNKNOWN
     Route: 065
     Dates: start: 20010101, end: 20060630
  4. FOSAMAX [Suspect]
     Active Substance: ALENDRONATE SODIUM
     Indication: BONE DENSITY ABNORMAL
  5. FOSAMAX [Suspect]
     Active Substance: ALENDRONATE SODIUM
     Indication: OSTEOPENIA
     Dosage: 70 MG, UNKNOWN
     Route: 048
     Dates: start: 20060703, end: 200807
  6. FOSAMAX [Suspect]
     Active Substance: ALENDRONATE SODIUM
     Indication: BONE DENSITY ABNORMAL
     Dosage: 70 MG, UNKNOWN
     Route: 048
     Dates: start: 200807, end: 201001
  7. ALENDRONATE SODIUM. [Suspect]
     Active Substance: ALENDRONATE SODIUM
     Indication: BONE DENSITY ABNORMAL
     Dosage: 70 MG, UNKNOWN
     Route: 048
     Dates: start: 200608, end: 200804

REACTIONS (43)
  - Spinal fusion surgery [Unknown]
  - Pain [Unknown]
  - Fracture delayed union [Unknown]
  - Hyperlipidaemia [Unknown]
  - Large intestine polyp [Unknown]
  - Arthropathy [Unknown]
  - Gastrooesophageal reflux disease [Unknown]
  - Constipation [Unknown]
  - Open reduction of fracture [Unknown]
  - Osteoarthritis [Unknown]
  - Groin pain [Unknown]
  - Pain [Unknown]
  - Extrasystoles [Unknown]
  - Device breakage [Unknown]
  - Back pain [Unknown]
  - Calcium deficiency [Unknown]
  - Urinary retention [Unknown]
  - Coronary artery disease [Unknown]
  - Bone density decreased [Unknown]
  - Anaemia [Unknown]
  - Medical device removal [Unknown]
  - Fracture nonunion [Unknown]
  - Medical device removal [Unknown]
  - Benign prostatic hyperplasia [Unknown]
  - Anaemia of chronic disease [Not Recovered/Not Resolved]
  - Device defective [Unknown]
  - Inappropriate schedule of drug administration [Unknown]
  - Surgery [Unknown]
  - Periodontal disease [Unknown]
  - Fracture nonunion [Unknown]
  - Anaemia postoperative [Unknown]
  - Rhinitis allergic [Unknown]
  - Ventricular extrasystoles [Unknown]
  - Fracture nonunion [Not Recovered/Not Resolved]
  - Open reduction of fracture [Unknown]
  - Femur fracture [Unknown]
  - Device failure [Unknown]
  - Rotator cuff syndrome [Unknown]
  - Asthenia [Unknown]
  - Blood calcium decreased [Unknown]
  - Femur fracture [Unknown]
  - Dental implantation [Unknown]
  - Limb asymmetry [Unknown]

NARRATIVE: CASE EVENT DATE: 2001
